FAERS Safety Report 23301452 (Version 2)
Quarter: 2024Q1

REPORT INFORMATION
  Report Type: Report from Study
  Country: US (occurrence: US)
  Receive Date: 20231215
  Receipt Date: 20240312
  Transmission Date: 20240410
  Serious: Yes (Hospitalization)
  Sender: FDA-Public Use
  Company Number: US-ARGENX-2023-ARGX-US004377AA

PATIENT

DRUGS (1)
  1. VYVGART [Suspect]
     Active Substance: EFGARTIGIMOD ALFA-FCAB
     Indication: Myasthenia gravis
     Dosage: UNK
     Route: 042
     Dates: start: 20231208

REACTIONS (5)
  - Chronic obstructive pulmonary disease [Unknown]
  - Nasal congestion [Unknown]
  - Cough [Unknown]
  - Dyspnoea exertional [Unknown]
  - Muscular weakness [Unknown]

NARRATIVE: CASE EVENT DATE: 20231209
